FAERS Safety Report 19576420 (Version 1)
Quarter: 2021Q3

REPORT INFORMATION
  Report Type: Spontaneous
  Country: US (occurrence: US)
  Receive Date: 20210717
  Receipt Date: 20210717
  Transmission Date: 20211014
  Serious: Yes (Hospitalization)
  Sender: FDA-Public Use
  Company Number: None

PATIENT
  Age: 31 Year
  Sex: Male
  Weight: 117.7 kg

DRUGS (5)
  1. CYCLOPHOSPHAMIDE. [Suspect]
     Active Substance: CYCLOPHOSPHAMIDE
     Dates: end: 20210628
  2. MERCAPTOPURINE. [Suspect]
     Active Substance: MERCAPTOPURINE
     Dates: end: 20210707
  3. RITUXIMAB (MOAB C2B8 ANTI CD20, CHIMERIC) [Suspect]
     Active Substance: RITUXIMAB
     Dates: end: 20210707
  4. CYTARABINE. [Suspect]
     Active Substance: CYTARABINE
     Dates: end: 20210707
  5. METHOTREXATE. [Suspect]
     Active Substance: METHOTREXATE
     Dates: end: 20210707

REACTIONS (8)
  - Urticaria [None]
  - Nausea [None]
  - Vomiting [None]
  - Pancytopenia [None]
  - Pruritus [None]
  - Productive cough [None]
  - Dysphagia [None]
  - Infusion related reaction [None]

NARRATIVE: CASE EVENT DATE: 20210707
